FAERS Safety Report 10744220 (Version 2)
Quarter: 2015Q1

REPORT INFORMATION
  Report Type: Spontaneous
  Country: US (occurrence: US)
  Receive Date: 20150128
  Receipt Date: 20150302
  Transmission Date: 20150721
  Serious: No
  Sender: FDA-Public Use
  Company Number: US-ELI_LILLY_AND_COMPANY-US201501002009

PATIENT
  Age: 64 Year
  Sex: Male

DRUGS (1)
  1. TRULICITY [Suspect]
     Active Substance: DULAGLUTIDE
     Indication: DIABETES MELLITUS
     Dosage: 1.5 MG, UNK
     Route: 058
     Dates: start: 201501

REACTIONS (3)
  - Dehydration [Recovered/Resolved]
  - Decreased appetite [Recovered/Resolved]
  - Thirst decreased [Recovered/Resolved]
